FAERS Safety Report 14794817 (Version 2)
Quarter: 2020Q3

REPORT INFORMATION
  Report Type: Spontaneous
  Country: US (occurrence: US)
  Receive Date: 20180423
  Receipt Date: 20200908
  Transmission Date: 20201102
  Serious: Yes (Life-Threatening, Hospitalization, Other)
  Sender: FDA-Public Use
  Company Number: US-MYLANLABS-2018M1025053

PATIENT
  Age: 13 Year
  Sex: Female

DRUGS (4)
  1. DIPHENHYDRAMINE                    /00000402/ [Concomitant]
     Active Substance: DIPHENHYDRAMINE
     Indication: PRODUCT USED FOR UNKNOWN INDICATION
     Dosage: 25 MILLIGRAM
     Route: 048
  2. CODEINE [Suspect]
     Active Substance: CODEINE
     Indication: PAIN MANAGEMENT
     Dosage: UNK
     Route: 065
  3. HYDROMORPHONE [Suspect]
     Active Substance: HYDROMORPHONE
     Indication: PAIN MANAGEMENT
     Route: 065
  4. MORPHINE [Suspect]
     Active Substance: MORPHINE
     Indication: PAIN MANAGEMENT
     Dosage: UNK
     Route: 048

REACTIONS (18)
  - Overdose [Unknown]
  - Acute respiratory distress syndrome [Unknown]
  - Pneumonia [Unknown]
  - Hepatomegaly [Unknown]
  - Sickle cell anaemia with crisis [Unknown]
  - Renal infarct [Unknown]
  - Splenomegaly [Unknown]
  - Ascites [Unknown]
  - Drug dependence [Unknown]
  - Acute kidney injury [Unknown]
  - Toxicity to various agents [Unknown]
  - Posterior reversible encephalopathy syndrome [Unknown]
  - Unresponsive to stimuli [Unknown]
  - Pleural effusion [Unknown]
  - Atelectasis [Unknown]
  - Blindness transient [Unknown]
  - Acute chest syndrome [Unknown]
  - Intentional product misuse [Unknown]
